FAERS Safety Report 7940597-8 (Version None)
Quarter: 2011Q4

REPORT INFORMATION
  Report Type: 
  Country: None (occurrence: None)
  Receive Date: 20111114
  Receipt Date: 20101027
  Transmission Date: 20120403
  Serious: Yes (Hospitalization)
  Sender: FDA-Public Use
  Company Number: 2010S1001572

PATIENT
  Sex: Female

DRUGS (2)
  1. VANCOMYCIN [Concomitant]
  2. CUBICIN [Suspect]
     Indication: SKIN INFECTION
     Dosage: 4 MG/KG;   ; IV
     Route: 042
     Dates: start: 20101018, end: 20101022

REACTIONS (1)
  - HYPERSENSITIVITY [None]
